FAERS Safety Report 13652762 (Version 1)
Quarter: 2017Q2

REPORT INFORMATION
  Report Type: Report from Study
  Country: BR (occurrence: BR)
  Receive Date: 20170614
  Receipt Date: 20170614
  Transmission Date: 20170830
  Serious: Yes (Hospitalization, Other)
  Sender: FDA-Public Use
  Company Number: PHHY2014BR009172

PATIENT
  Age: 53 Year
  Sex: Female
  Weight: 103 kg

DRUGS (7)
  1. FLUOXETINE [Concomitant]
     Active Substance: FLUOXETINE HYDROCHLORIDE
     Indication: FIBROMYALGIA
     Dosage: 2 DF, QD (LONG TIME AGO)
     Route: 048
  2. ALENIA [Concomitant]
     Active Substance: BUDESONIDE\FORMOTEROL FUMARATE
     Indication: PYREXIA
     Dosage: 3 DF, QD (2 OR 3 ASPIRATION) 3 YEARS AGO
     Route: 065
  3. ALENIA [Concomitant]
     Active Substance: BUDESONIDE\FORMOTEROL FUMARATE
     Indication: ASTHMA
     Dosage: 1 DF, IN THE MORNING AND AT NIGHT
     Route: 055
  4. ALENIA [Concomitant]
     Active Substance: BUDESONIDE\FORMOTEROL FUMARATE
     Indication: FATIGUE
  5. XOLAIR [Suspect]
     Active Substance: OMALIZUMAB
     Indication: ASTHMA
     Dosage: 1 DF (ONE AMPOULE), EVERY 15 DAYS
     Route: 058
     Dates: start: 201310
  6. FORASEQ [Suspect]
     Active Substance: BUDESONIDE\FORMOTEROL FUMARATE
     Indication: ASTHMA
     Dosage: 3 DF, QD (2 OR 3 ASPIRATION)
     Route: 065
  7. ALENIA [Concomitant]
     Active Substance: BUDESONIDE\FORMOTEROL FUMARATE
     Indication: DYSPNOEA

REACTIONS (10)
  - Pneumonia [Unknown]
  - Respiratory tract infection [Recovered/Resolved]
  - Spinal pain [Unknown]
  - Spinal cord disorder [Unknown]
  - Lung infection [Recovering/Resolving]
  - Mobility decreased [Unknown]
  - Pyrexia [Recovered/Resolved]
  - Dyspnoea [Recovering/Resolving]
  - Asthma [Not Recovered/Not Resolved]
  - Fatigue [Recovering/Resolving]

NARRATIVE: CASE EVENT DATE: 20131230
